FAERS Safety Report 8857561 (Version 1)
Quarter: 2012Q4

REPORT INFORMATION
  Report Type: 
  Country: US (occurrence: US)
  Receive Date: 20121024
  Receipt Date: 20121024
  Transmission Date: 20130627
  Serious: No
  Sender: FDA-Public Use
  Company Number: US-009507513-1207USA009651

PATIENT
  Sex: Male

DRUGS (1)
  1. NITRO-DUR [Suspect]
     Indication: HYPERTENSION
     Dosage: 1 DF, q12h
     Route: 062

REACTIONS (2)
  - Pneumonia [Not Recovered/Not Resolved]
  - Product quality issue [Unknown]
